FAERS Safety Report 18372556 (Version 5)
Quarter: 2020Q4

REPORT INFORMATION
  Report Type: Spontaneous
  Country: DE (occurrence: DE)
  Receive Date: 20201012
  Receipt Date: 20201029
  Transmission Date: 20210114
  Serious: Yes (Life-Threatening, Hospitalization, Other)
  Sender: FDA-Public Use
  Company Number: NVSC2020DE274699

PATIENT
  Age: 51 Year
  Sex: Female

DRUGS (6)
  1. LORAZEPAM. [Concomitant]
     Active Substance: LORAZEPAM
     Indication: MAJOR DEPRESSION
     Dosage: UNK
     Route: 065
  2. OLANZAPINE. [Suspect]
     Active Substance: OLANZAPINE
     Indication: SUSPECTED SUICIDE ATTEMPT
     Dosage: 5 MG, QD
     Route: 065
  3. OLANZAPINE. [Suspect]
     Active Substance: OLANZAPINE
     Indication: MAJOR DEPRESSION
     Dosage: 1200 MG (160X7.5MG), SINGLE DOSE
     Route: 065
  4. DULOXETINE HYDROCHLORIDE. [Concomitant]
     Active Substance: DULOXETINE HYDROCHLORIDE
     Indication: MAJOR DEPRESSION
     Dosage: 90 MG, QD
     Route: 065
  5. OLANZAPINE. [Suspect]
     Active Substance: OLANZAPINE
     Dosage: 1200 MILLIGRAM, QD (160 DOSAGE FORM)
     Route: 065
  6. OLANZAPINE. [Suspect]
     Active Substance: OLANZAPINE
     Dosage: 7.5 MILLIGRAM
     Route: 065

REACTIONS (14)
  - Brain oedema [Not Recovered/Not Resolved]
  - Overdose [Recovering/Resolving]
  - Suicide attempt [Unknown]
  - Neuroleptic malignant syndrome [Not Recovered/Not Resolved]
  - Loss of consciousness [Not Recovered/Not Resolved]
  - Intentional overdose [Unknown]
  - Apallic syndrome [Not Recovered/Not Resolved]
  - Enlarged cerebral perivascular spaces [Unknown]
  - Coma [Recovered/Resolved]
  - Basal ganglia haemorrhage [Not Recovered/Not Resolved]
  - Quadriparesis [Not Recovered/Not Resolved]
  - Suspected suicide attempt [Unknown]
  - Cerebral haemorrhage [Not Recovered/Not Resolved]
  - Toxicity to various agents [Unknown]
